FAERS Safety Report 6920396-6 (Version None)
Quarter: 2010Q3

REPORT INFORMATION
  Report Type: 
  Country: None (occurrence: None)
  Receive Date: 20100812
  Receipt Date: 20100803
  Transmission Date: 20110219
  Serious: Yes (Hospitalization)
  Sender: FDA-Public Use
  Company Number: US-BIOGENIDEC-2009BI018880

PATIENT
  Age: 60 Year
  Sex: Female

DRUGS (2)
  1. TYSABRI [Suspect]
     Indication: MULTIPLE SCLEROSIS
     Route: 042
     Dates: start: 20081021, end: 20090903
  2. TYSABRI [Suspect]
     Indication: CROHN'S DISEASE
     Route: 042
     Dates: start: 20081021, end: 20090903

REACTIONS (14)
  - AUTONOMIC NERVOUS SYSTEM IMBALANCE [None]
  - BALANCE DISORDER [None]
  - CERVICAL SPINAL STENOSIS [None]
  - CROHN'S DISEASE [None]
  - FALL [None]
  - GAIT DISTURBANCE [None]
  - HEART RATE DECREASED [None]
  - HERPES ZOSTER [None]
  - INTERVERTEBRAL DISC PROTRUSION [None]
  - MASTOID DISORDER [None]
  - MUSCULAR WEAKNESS [None]
  - SPINAL COLUMN INJURY [None]
  - URINARY TRACT INFECTION [None]
  - VOMITING [None]
